FAERS Safety Report 9218846 (Version 1)
Quarter: 2013Q2

REPORT INFORMATION
  Report Type: Spontaneous
  Country: US (occurrence: US)
  Receive Date: 20130409
  Receipt Date: 20130409
  Transmission Date: 20140414
  Serious: Yes (Other)
  Sender: FDA-Public Use
  Company Number: US-SANOFI-AVENTIS-2013SA035893

PATIENT
  Age: 79 Year
  Sex: Female

DRUGS (4)
  1. LANTUS SOLOSTAR [Suspect]
     Indication: TYPE 2 DIABETES MELLITUS
     Dosage: START DATE: SEVERAL YEARS AGO
  2. SOLOSTAR [Suspect]
     Indication: TYPE 2 DIABETES MELLITUS
  3. LEVEMIR [Suspect]
  4. HUMALOG [Suspect]

REACTIONS (6)
  - Cardiac disorder [Unknown]
  - Pruritus [Unknown]
  - Scratch [Unknown]
  - Pigmentation disorder [Unknown]
  - Blood glucose decreased [Unknown]
  - Wrong drug administered [Unknown]
